FAERS Safety Report 17583586 (Version 1)
Quarter: 2020Q1

REPORT INFORMATION
  Report Type: Spontaneous
  Country: GB (occurrence: GB)
  Receive Date: 20200326
  Receipt Date: 20200326
  Transmission Date: 20200409
  Serious: Yes (Other)
  Sender: FDA-Public Use
  Company Number: GB-TEVA-2020-GB-1209820

PATIENT
  Age: 24 Year
  Sex: Female
  Weight: 50 kg

DRUGS (2)
  1. COCODAMOL [Concomitant]
     Active Substance: ACETAMINOPHEN\CODEINE PHOSPHATE
     Dosage: TAKE 1 OR 2 FOUR TIMES A DAY WHEN REQUIRED
     Dates: start: 20200221
  2. NAPROXEN. [Suspect]
     Active Substance: NAPROXEN
     Dosage: 750 MILLIGRAM DAILY; AFTER FOOD
     Dates: start: 20200221

REACTIONS (3)
  - Malaise [Unknown]
  - Dyspnoea [Recovered/Resolved]
  - Chest discomfort [Unknown]
